FAERS Safety Report 12459801 (Version 1)
Quarter: 2016Q2

REPORT INFORMATION
  Report Type: Spontaneous
  Country: CH (occurrence: CH)
  Receive Date: 20160613
  Receipt Date: 20160613
  Transmission Date: 20160815
  Serious: Yes (Death, Other)
  Sender: FDA-Public Use
  Company Number: CH-TEVA-665566ISR

PATIENT
  Age: 8 Decade
  Sex: Male

DRUGS (4)
  1. PARACETAMOL [Suspect]
     Active Substance: ACETAMINOPHEN
     Indication: CHEST PAIN
     Dosage: 3 GRAM DAILY;
     Route: 065
  2. TRAMADOL. [Suspect]
     Active Substance: TRAMADOL
     Dosage: 75 MILLIGRAM DAILY; RESERVE DOSES
     Route: 065
  3. MORPHINE [Suspect]
     Active Substance: MORPHINE
     Indication: CHEST PAIN
     Route: 065
  4. TRAMADOL. [Suspect]
     Active Substance: TRAMADOL
     Indication: CHEST PAIN
     Dosage: 150 MILLIGRAM DAILY;
     Route: 065

REACTIONS (5)
  - Death [Fatal]
  - Confusional state [Recovered/Resolved]
  - Somnolence [Unknown]
  - Hallucination, visual [Unknown]
  - Circadian rhythm sleep disorder [Unknown]
